FAERS Safety Report 7780484-1 (Version None)
Quarter: 2011Q3

REPORT INFORMATION
  Report Type: 
  Country: None (occurrence: None)
  Receive Date: 20110927
  Receipt Date: 20110718
  Transmission Date: 20111222
  Serious: No
  Sender: FDA-Public Use
  Company Number: US-GLAXOSMITHKLINE-A0937088A

PATIENT
  Sex: Female

DRUGS (6)
  1. RESTASIS [Concomitant]
  2. LAMICTAL [Suspect]
     Indication: STURGE-WEBER SYNDROME
     Route: 048
  3. LAMOTRIGINE [Suspect]
     Indication: STURGE-WEBER SYNDROME
     Dosage: 200MG THREE TIMES PER DAY
     Route: 048
  4. TEGRETOL [Concomitant]
  5. PHENOBARBITAL TAB [Concomitant]
  6. OXYBUTYNIN [Concomitant]

REACTIONS (2)
  - DIPLOPIA [None]
  - VISION BLURRED [None]
